FAERS Safety Report 8036443-7 (Version None)
Quarter: 2012Q1

REPORT INFORMATION
  Report Type: 
  Country: None (occurrence: None)
  Receive Date: 20120106
  Receipt Date: 20120102
  Transmission Date: 20120608
  Serious: Yes (Hospitalization, Other)
  Sender: FDA-Public Use
  Company Number: ADR-2011-11605

PATIENT
  Sex: Female

DRUGS (2)
  1. LIORESAL [Suspect]
     Indication: CEREBRAL PALSY
     Dosage: 493.0 MCG/DAY
  2. LIORESAL [Suspect]
     Indication: MUSCLE SPASTICITY
     Dosage: 493.0 MCG/DAY

REACTIONS (11)
  - FOETAL HEART RATE ABNORMAL [None]
  - CRYING [None]
  - DEVICE MALFUNCTION [None]
  - IRRITABILITY [None]
  - PYREXIA [None]
  - HYPERHIDROSIS [None]
  - MUSCLE SPASMS [None]
  - INTESTINAL OBSTRUCTION [None]
  - CONVULSION [None]
  - VOLVULUS [None]
  - DRUG WITHDRAWAL SYNDROME [None]
